FAERS Safety Report 19959450 (Version 2)
Quarter: 2021Q4

REPORT INFORMATION
  Report Type: Spontaneous
  Country: KR (occurrence: KR)
  Receive Date: 20211015
  Receipt Date: 20211220
  Transmission Date: 20220304
  Serious: Yes (Death, Other)
  Sender: FDA-Public Use
  Company Number: KR-AMGEN-KORSP2021158817

PATIENT
  Age: 44 Year
  Sex: Male

DRUGS (1)
  1. BLINATUMOMAB [Suspect]
     Active Substance: BLINATUMOMAB
     Indication: B precursor type acute leukaemia
     Dosage: UNK
     Route: 065

REACTIONS (2)
  - B precursor type acute leukaemia [Fatal]
  - Therapy non-responder [Unknown]
